FAERS Safety Report 12825525 (Version 6)
Quarter: 2017Q4

REPORT INFORMATION
  Report Type: Report from Study
  Country: CA (occurrence: CA)
  Receive Date: 20161006
  Receipt Date: 20171025
  Transmission Date: 20180320
  Serious: Yes (Hospitalization, Other)
  Sender: FDA-Public Use
  Company Number: CA-GLAXOSMITHKLINE-CA2016GSK142936

PATIENT
  Sex: Female

DRUGS (3)
  1. MEPOLIZUMAB [Suspect]
     Active Substance: MEPOLIZUMAB
     Dosage: 100 MG, Z
     Route: 042
     Dates: start: 20161220
  2. MEPOLIZUMAB [Suspect]
     Active Substance: MEPOLIZUMAB
     Dosage: 100 MG, Z
     Route: 042
     Dates: start: 20170117, end: 201706
  3. MEPOLIZUMAB [Suspect]
     Active Substance: MEPOLIZUMAB
     Indication: ASTHMA
     Dosage: 100 MG, Z
     Route: 042
     Dates: start: 20160906

REACTIONS (10)
  - Asthma [Unknown]
  - Burning sensation [Unknown]
  - Swelling [Unknown]
  - Peripheral swelling [Unknown]
  - Skin warm [Unknown]
  - Pneumonia [Unknown]
  - Lung infection [Unknown]
  - Skin lesion [Unknown]
  - Pain in extremity [Unknown]
  - Drug ineffective [Unknown]
